FAERS Safety Report 9202128 (Version 1)
Quarter: 2013Q2

REPORT INFORMATION
  Report Type: Spontaneous
  Country: CA (occurrence: CA)
  Receive Date: 20130401
  Receipt Date: 20130401
  Transmission Date: 20140414
  Serious: Yes (Hospitalization)
  Sender: FDA-Public Use
  Company Number: CA-TEVA-394962USA

PATIENT
  Age: 54 Year
  Sex: Female

DRUGS (2)
  1. IRBESARTAN [Suspect]
     Indication: HYPERTENSION
  2. TAMOXIFEN [Suspect]
     Indication: BREAST CANCER
     Dosage: 20 MILLIGRAM DAILY;
     Route: 048
     Dates: start: 200902

REACTIONS (3)
  - Vestibular disorder [Unknown]
  - Migraine [Unknown]
  - Dizziness [Unknown]
